APPROVED DRUG PRODUCT: LITHIUM CITRATE
Active Ingredient: LITHIUM CITRATE
Strength: EQ 300MG CARBONATE/5ML
Dosage Form/Route: SYRUP;ORAL
Application: A218036 | Product #001 | TE Code: AA
Applicant: RUBICON RESEARCH LTD
Approved: Aug 14, 2023 | RLD: No | RS: Yes | Type: RX